FAERS Safety Report 10276884 (Version 4)
Quarter: 2014Q3

REPORT INFORMATION
  Report Type: Report from Study
  Country: RU (occurrence: RU)
  Receive Date: 20140703
  Receipt Date: 20140730
  Transmission Date: 20150326
  Serious: Yes (Hospitalization)
  Sender: FDA-Public Use
  Company Number: RU-JNJFOC-20140620252

PATIENT
  Age: 34 Year
  Sex: Female

DRUGS (16)
  1. GOLIMUMAB [Suspect]
     Active Substance: GOLIMUMAB
     Indication: COLITIS ULCERATIVE
     Route: 058
     Dates: start: 20100927
  2. PREDNISOLONE. [Concomitant]
     Active Substance: PREDNISOLONE
     Indication: COLITIS ULCERATIVE
     Route: 048
     Dates: start: 20090929, end: 20101228
  3. CEFAZOLIN [Concomitant]
     Active Substance: CEFAZOLIN
     Route: 030
     Dates: start: 20140626, end: 20140702
  4. ASPIRIN. [Concomitant]
     Active Substance: ASPIRIN
     Route: 048
     Dates: start: 20140626, end: 20140703
  5. PROCTOSEDYL [Concomitant]
     Active Substance: DIBUCAINE HYDROCHLORIDE\HYDROCORTISONE
     Route: 054
     Dates: start: 20130219, end: 20130228
  6. TRIMEDAT [Concomitant]
     Route: 048
     Dates: start: 20130219, end: 20130319
  7. AZATHIOPRINE. [Concomitant]
     Active Substance: AZATHIOPRINE
     Indication: COLITIS ULCERATIVE
     Route: 048
     Dates: start: 201002, end: 20110410
  8. GOLIMUMAB [Suspect]
     Active Substance: GOLIMUMAB
     Indication: COLITIS ULCERATIVE
     Route: 058
     Dates: start: 20140604, end: 20140630
  9. LANSOPRAZOLE. [Concomitant]
     Active Substance: LANSOPRAZOLE
     Route: 048
     Dates: start: 20100709, end: 20101228
  10. SULFASALAZINE DELAYED-RELEASE [Concomitant]
     Active Substance: SULFASALAZINE
     Indication: COLITIS ULCERATIVE
     Route: 048
     Dates: start: 20090903
  11. LINEX [Concomitant]
     Route: 048
     Dates: start: 20110511, end: 20110531
  12. DETRALEX [Concomitant]
     Active Substance: DIOSMIN\HESPERIDIN
     Route: 048
     Dates: start: 20130219, end: 20130326
  13. SOLCOSERYL [Concomitant]
     Active Substance: SOLCOSERYL
     Route: 058
     Dates: start: 20130218, end: 20130401
  14. MULTI B COMPLEX [Concomitant]
     Route: 048
     Dates: start: 20110511, end: 20110630
  15. HEPATHROMB [Concomitant]
     Route: 054
     Dates: start: 20130219, end: 20130228
  16. ENTEROL NOS [Concomitant]
     Route: 048
     Dates: start: 20100930, end: 20101009

REACTIONS (1)
  - Uterine leiomyoma [Recovered/Resolved]

NARRATIVE: CASE EVENT DATE: 20140625
